FAERS Safety Report 10595420 (Version 2)
Quarter: 2014Q4

REPORT INFORMATION
  Report Type: Spontaneous
  Country: US (occurrence: US)
  Receive Date: 20141120
  Receipt Date: 20141120
  Transmission Date: 20150529
  Serious: Yes (Other)
  Sender: FDA-Public Use
  Company Number: US-TEVA-491415USA

PATIENT
  Sex: Female

DRUGS (2)
  1. FOSINOPRIL [Suspect]
     Active Substance: FOSINOPRIL
     Indication: BLOOD PRESSURE
  2. FOSINOPRIL [Suspect]
     Active Substance: FOSINOPRIL

REACTIONS (7)
  - Blood pressure increased [Unknown]
  - Drug ineffective [Unknown]
  - Dyspnoea [Unknown]
  - Headache [Unknown]
  - Heart rate increased [Unknown]
  - Respiratory rate increased [Unknown]
  - Blood pressure inadequately controlled [Unknown]

NARRATIVE: CASE EVENT DATE: 20140624
